FAERS Safety Report 16039855 (Version 1)
Quarter: 2019Q1

REPORT INFORMATION
  Report Type: Spontaneous
  Country: US (occurrence: US)
  Receive Date: 20190306
  Receipt Date: 20190306
  Transmission Date: 20190418
  Serious: No
  Sender: FDA-Public Use
  Company Number: US-BAYER-2019-042909

PATIENT
  Sex: Female
  Weight: 57 kg

DRUGS (4)
  1. BAYER LOW DOSE [Suspect]
     Active Substance: ASPIRIN
     Route: 048
     Dates: start: 2017
  2. FOLIC ACID. [Concomitant]
     Active Substance: FOLIC ACID
  3. BAYER ASPIRIN [Suspect]
     Active Substance: ASPIRIN
     Indication: PAIN
     Dosage: 7-8 TABLETS A DAY
     Route: 048
  4. ALEVE [Suspect]
     Active Substance: NAPROXEN SODIUM
     Indication: PAIN
     Route: 048
     Dates: start: 2010

REACTIONS (3)
  - Incorrect product administration duration [Unknown]
  - Anaemia [Not Recovered/Not Resolved]
  - Drug ineffective [Unknown]

NARRATIVE: CASE EVENT DATE: 2010
